FAERS Safety Report 4707415-2 (Version None)
Quarter: 2005Q3

REPORT INFORMATION
  Report Type: 
  Country: None (occurrence: None)
  Receive Date: 20050706
  Receipt Date: 20050623
  Transmission Date: 20060218
  Serious: Yes (Other)
  Sender: FDA-Public Use
  Company Number: 2005GB01228

PATIENT
  Age: 44 Year
  Sex: Female

DRUGS (1)
  1. ZOLADEX [Suspect]
     Indication: UTERINE LEIOMYOMA
     Dosage: ONE DOSE ONLY
     Route: 058
     Dates: start: 20050504

REACTIONS (1)
  - VISUAL ACUITY REDUCED [None]
